FAERS Safety Report 7177888-7 (Version None)
Quarter: 2010Q4

REPORT INFORMATION
  Report Type: 
  Country: None (occurrence: None)
  Receive Date: 20101220
  Receipt Date: 20101214
  Transmission Date: 20110411
  Serious: Yes (Other)
  Sender: FDA-Public Use
  Company Number: US-AMGEN-USASP2010009323

PATIENT

DRUGS (1)
  1. ARANESP [Suspect]
     Indication: ONCOLOGIC COMPLICATION

REACTIONS (1)
  - WHITE BLOOD CELL COUNT INCREASED [None]
